FAERS Safety Report 13826876 (Version 1)
Quarter: 2017Q3

REPORT INFORMATION
  Report Type: Spontaneous
  Country: US (occurrence: US)
  Receive Date: 20170802
  Receipt Date: 20170802
  Transmission Date: 20171127
  Serious: Yes (Other)
  Sender: FDA-Public Use
  Company Number: US-ROCHE-650304

PATIENT
  Age: 78 Year
  Sex: Female
  Weight: 55.3 kg

DRUGS (7)
  1. MULTIVITAMIN NOS [Concomitant]
     Active Substance: VITAMINS
     Route: 065
  2. MICARDIS [Concomitant]
     Active Substance: TELMISARTAN
     Indication: HYPERTENSION
     Dosage: FREQUENCY: EVERY DAY (QD)
     Route: 048
  3. MAGNESIUM [Concomitant]
     Active Substance: MAGNESIUM
     Dosage: OTC MG?FREQUENCY: Q AM (EVERY MORNING)
     Route: 065
  4. CALCIUM/VITAMIN D [Concomitant]
     Active Substance: CALCIUM\VITAMIN D
     Indication: OSTEOPOROSIS
     Dosage: DOSE: 1000/800 IU QD (DAILY)
     Route: 048
  5. BONIVA [Suspect]
     Active Substance: IBANDRONATE SODIUM
     Indication: OSTEOPOROSIS
     Route: 048
     Dates: start: 20090709, end: 200908
  6. ATENOLOL. [Concomitant]
     Active Substance: ATENOLOL
     Indication: HYPERTENSION
     Route: 048
  7. FISH OIL [Concomitant]
     Active Substance: FISH OIL
     Dosage: FREQUENCY: QD (EVERY DAY)
     Route: 048

REACTIONS (9)
  - Pharyngitis [Unknown]
  - Spinal fracture [Unknown]
  - Vomiting [Unknown]
  - Cough [Recovering/Resolving]
  - Nausea [Unknown]
  - Upper-airway cough syndrome [Unknown]
  - Abdominal pain [Unknown]
  - Bone pain [Unknown]
  - Myalgia [Unknown]

NARRATIVE: CASE EVENT DATE: 20090710
